FAERS Safety Report 7049236-4 (Version None)
Quarter: 2010Q4

REPORT INFORMATION
  Report Type: 
  Country: None (occurrence: None)
  Receive Date: 20101018
  Receipt Date: 20101011
  Transmission Date: 20110411
  Serious: Yes (Death, Hospitalization)
  Sender: FDA-Public Use
  Company Number: US-ROCHE-684599

PATIENT
  Sex: Male

DRUGS (8)
  1. MYCOPHENOLATE MOFETIL [Suspect]
     Dosage: DOSE: 1000 MG 1 DAY.
     Route: 048
     Dates: start: 20090511, end: 20100907
  2. BELATACEPT [Suspect]
     Dosage: CYCLICAL DOSE
     Route: 042
     Dates: start: 20090511, end: 20100831
  3. BLINDED BASILIXIMAB [Suspect]
     Dosage: DRUG ADMINISTERED ON 11 MAY 2009 AND 13 MAY 2009.
     Route: 042
     Dates: start: 20090511, end: 20090513
  4. RIBAVIRIN [Concomitant]
     Dates: start: 20091013, end: 20100914
  5. ACTIGALL [Concomitant]
  6. CELEXA [Concomitant]
  7. URSODIOL [Concomitant]
     Dates: end: 20100914
  8. ZOLOFT [Concomitant]
     Dates: start: 20100806, end: 20100914

REACTIONS (6)
  - CYTOMEGALOVIRUS VIRAEMIA [None]
  - HEADACHE [None]
  - HYPERKALAEMIA [None]
  - MULTI-ORGAN FAILURE [None]
  - TREMOR [None]
  - URINARY TRACT INFECTION BACTERIAL [None]
